FAERS Safety Report 5596204-5 (Version None)
Quarter: 2007Q4

REPORT INFORMATION
  Report Type: 
  Country: None (occurrence: None)
  Receive Date: 20071218
  Receipt Date: 20070712
  Transmission Date: 20080405
  Serious: Yes (Hospitalization, Other)
  Sender: FDA-Public Use
  Company Number: 2006099097

PATIENT
  Age: 73 Year
  Sex: Female
  Weight: 90.7 kg

DRUGS (6)
  1. BEXTRA [Suspect]
     Indication: OSTEOARTHRITIS
     Dosage: 40 MG (20 MG,2 IN 1 D)
     Dates: start: 20030616
  2. BEXTRA [Suspect]
     Indication: PAIN
     Dosage: 40 MG (20 MG,2 IN 1 D)
     Dates: start: 20030616
  3. VIOXX [Suspect]
     Indication: OSTEOARTHRITIS
     Dosage: 50 MG (25 MG,2 IN 1 D), ORAL
     Route: 048
     Dates: start: 20001025, end: 20030613
  4. VICODIN [Concomitant]
  5. PREDNISONE TAB [Concomitant]
  6. QUININE SULFATE [Concomitant]

REACTIONS (2)
  - MYOCARDIAL INFARCTION [None]
  - RENAL DISORDER [None]
